FAERS Safety Report 13566454 (Version 2)
Quarter: 2017Q4

REPORT INFORMATION
  Report Type: Report from Study
  Country: US (occurrence: US)
  Receive Date: 20170522
  Receipt Date: 20171113
  Transmission Date: 20180320
  Serious: Yes (Hospitalization)
  Sender: FDA-Public Use
  Company Number: PHHY2017US074483

PATIENT
  Age: 28 Year
  Sex: Female
  Weight: 53.3 kg

DRUGS (24)
  1. LANTUS [Concomitant]
     Active Substance: INSULIN GLARGINE
     Dosage: 1 DF, QD
     Route: 058
     Dates: start: 20171016
  2. TOBI PODHALER [Suspect]
     Active Substance: TOBRAMYCIN
     Indication: INFECTIVE PULMONARY EXACERBATION OF CYSTIC FIBROSIS
     Dosage: 300 MG, UNK
     Route: 055
     Dates: start: 2011, end: 20170501
  3. TOBI PODHALER [Suspect]
     Active Substance: TOBRAMYCIN
     Dosage: 75 MG, BID
     Route: 055
     Dates: start: 20171016
  4. PULMOZYME [Concomitant]
     Active Substance: DORNASE ALFA
     Dosage: 2 DF (2.5 ML), QD
     Route: 055
     Dates: start: 20170501
  5. ALBUTEROL. [Concomitant]
     Active Substance: ALBUTEROL
     Indication: CYSTIC FIBROSIS
     Dosage: 2 DF (2 PUFF), PRN
     Route: 055
     Dates: start: 2013
  6. ADVAIR HFA [Concomitant]
     Active Substance: FLUTICASONE PROPIONATE\SALMETEROL XINAFOATE
     Indication: CYSTIC FIBROSIS
     Dosage: 2 DF (2 PUFFS), QD
     Route: 055
     Dates: start: 2016
  7. ADVAIR HFA [Concomitant]
     Active Substance: FLUTICASONE PROPIONATE\SALMETEROL XINAFOATE
     Dosage: 2 DF (2 PUFFS), QD
     Route: 055
     Dates: start: 20170501
  8. ALBUTEROL. [Concomitant]
     Active Substance: ALBUTEROL
     Dosage: 2 DF (2 PUFF), PRN
     Route: 055
     Dates: start: 20170501
  9. AZITHROMYCIN ANHYDROUS. [Concomitant]
     Active Substance: AZITHROMYCIN ANHYDROUS
     Dosage: 500 MG, EVERY 3 WEEKS
     Route: 048
     Dates: start: 20170428
  10. CREON [Concomitant]
     Active Substance: PANCRELIPASE AMYLASE\PANCRELIPASE LIPASE\PANCRELIPASE PROTEASE
     Indication: PANCREATIC FAILURE
     Dosage: UNK UNK, PRN (5-6 CAPSULES AFTER MEALS)
     Route: 065
     Dates: start: 2012
  11. CREON [Concomitant]
     Active Substance: PANCRELIPASE AMYLASE\PANCRELIPASE LIPASE\PANCRELIPASE PROTEASE
     Dosage: UNK UNK, PRN (5-6 CAPSULES AFTER MEALS)
     Route: 065
     Dates: start: 20171017
  12. PANGESTYME [Concomitant]
     Indication: PANCREATIC FAILURE
     Dosage: 5-6 CAP, PRN
     Route: 048
     Dates: start: 2012
  13. PANGESTYME [Concomitant]
     Dosage: 5-6 CAP, PRN
     Route: 048
     Dates: start: 20170501
  14. AZITHROMYCIN ANHYDROUS. [Concomitant]
     Active Substance: AZITHROMYCIN ANHYDROUS
     Dosage: 500 MG, EVERY 3 WEEKS
     Route: 048
     Dates: start: 20171015
  15. LANTUS [Concomitant]
     Active Substance: INSULIN GLARGINE
     Dosage: 12 UG, QD
     Route: 058
     Dates: start: 20170501
  16. MINOCYCLINE [Concomitant]
     Active Substance: MINOCYCLINE\MINOCYCLINE HYDROCHLORIDE
     Indication: CYSTIC FIBROSIS
     Dosage: 2 DF (100 MG), QD
     Route: 048
     Dates: start: 2016, end: 20170424
  17. PULMOZYME [Concomitant]
     Active Substance: DORNASE ALFA
     Indication: CYSTIC FIBROSIS
     Dosage: 2 DF (2.5 ML), QD
     Route: 055
     Dates: start: 2012
  18. PULMOZYME [Concomitant]
     Active Substance: DORNASE ALFA
     Dosage: 2.5 ML, BID
     Route: 065
     Dates: start: 20171017
  19. AZITHROMYCIN ANHYDROUS. [Concomitant]
     Active Substance: AZITHROMYCIN ANHYDROUS
     Indication: CYSTIC FIBROSIS
     Dosage: 500 MG, EVERY 3 WEEKS
     Route: 048
  20. ADEK [Concomitant]
     Indication: CYSTIC FIBROSIS
     Dosage: 1 DF, QD
     Route: 048
  21. ADVAIR HFA [Concomitant]
     Active Substance: FLUTICASONE PROPIONATE\SALMETEROL XINAFOATE
     Dosage: 2 DF (2 PUFFS), BID
     Route: 055
     Dates: start: 20171017
  22. ADEK [Concomitant]
     Dosage: 1 DF, QD
     Route: 048
     Dates: start: 20170501
  23. LANTUS [Concomitant]
     Active Substance: INSULIN GLARGINE
     Indication: DIABETES MELLITUS
     Dosage: 12 UG, QD
     Route: 058
  24. VITAMIN D3 [Concomitant]
     Active Substance: CHOLECALCIFEROL
     Indication: VITAMIN D DEFICIENCY
     Dosage: 50000 U, QW
     Route: 065
     Dates: start: 2016

REACTIONS (7)
  - Cough [Unknown]
  - Fatigue [Unknown]
  - Weight decreased [Unknown]
  - Forced expiratory volume decreased [Unknown]
  - Productive cough [Unknown]
  - Infective pulmonary exacerbation of cystic fibrosis [Recovering/Resolving]
  - Dyspnoea [Unknown]

NARRATIVE: CASE EVENT DATE: 20170501
